APPROVED DRUG PRODUCT: ENALAPRIL MALEATE
Active Ingredient: ENALAPRIL MALEATE
Strength: 10MG
Dosage Form/Route: TABLET;ORAL
Application: A075048 | Product #003
Applicant: CHARTWELL RX SCIENCES LLC
Approved: Aug 22, 2000 | RLD: No | RS: No | Type: DISCN